FAERS Safety Report 16244215 (Version 1)
Quarter: 2019Q2

REPORT INFORMATION
  Report Type: Spontaneous
  Country: US (occurrence: US)
  Receive Date: 20190426
  Receipt Date: 20190426
  Transmission Date: 20190711
  Serious: Yes (Other)
  Sender: FDA-Public Use
  Company Number: US-ELI_LILLY_AND_COMPANY-US201904010615

PATIENT
  Sex: Female

DRUGS (3)
  1. BYSTOLIC [Concomitant]
     Active Substance: NEBIVOLOL HYDROCHLORIDE
     Indication: FIBROMUSCULAR DYSPLASIA
     Dosage: 5 MG, UNKNOWN
     Route: 065
  2. AZOR [ALPRAZOLAM] [Concomitant]
     Active Substance: ALPRAZOLAM
     Indication: FIBROMUSCULAR DYSPLASIA
     Dosage: UNK, UNKNOWN
     Route: 065
  3. EMGALITY [Suspect]
     Active Substance: GALCANEZUMAB-GNLM
     Indication: MIGRAINE
     Dosage: UNK, UNKNOWN
     Route: 065
     Dates: start: 20190216

REACTIONS (2)
  - Fibromuscular dysplasia [Not Recovered/Not Resolved]
  - Intracranial aneurysm [Not Recovered/Not Resolved]
